FAERS Safety Report 12856166 (Version 1)
Quarter: 2016Q4

REPORT INFORMATION
  Report Type: Spontaneous
  Country: US (occurrence: US)
  Receive Date: 20161018
  Receipt Date: 20161018
  Transmission Date: 20170207
  Serious: Yes (Other)
  Sender: FDA-Public Use
  Company Number: US-009507513-1610USA008134

PATIENT
  Age: 34 Year
  Sex: Female

DRUGS (5)
  1. METOPROLOL. [Concomitant]
     Active Substance: METOPROLOL
  2. LISINOPRIL. [Concomitant]
     Active Substance: LISINOPRIL
  3. METFORMIN [Concomitant]
     Active Substance: METFORMIN HYDROCHLORIDE
  4. JANUVIA [Suspect]
     Active Substance: SITAGLIPTIN PHOSPHATE
     Indication: DIABETES MELLITUS
     Dosage: 100 MG, UNK
     Route: 048
     Dates: start: 20160509, end: 2016
  5. TRICOR [Concomitant]
     Active Substance: FENOFIBRATE

REACTIONS (1)
  - Pancreatitis [Not Recovered/Not Resolved]

NARRATIVE: CASE EVENT DATE: 20160728
